FAERS Safety Report 4314800-X (Version None)
Quarter: 2004Q1

REPORT INFORMATION
  Report Type: 
  Country: None (occurrence: None)
  Receive Date: 20040308
  Receipt Date: 20040224
  Transmission Date: 20041129
  Serious: Yes (Disabling)
  Sender: FDA-Public Use
  Company Number: 2004-BP-00872NB

PATIENT
  Age: 77 Year
  Sex: Female

DRUGS (5)
  1. MICARDIS [Suspect]
     Indication: HYPERTENSION
     Dosage: 40 MG (NR)
     Route: 048
     Dates: start: 20040124, end: 20040124
  2. NORVASC [Concomitant]
  3. URSO (URSODEOXYCHOLIC ACID) (TA) [Concomitant]
  4. MAINTATE (BISOPROLOL FUMARATE) (TA) [Concomitant]
  5. DEPAS (ETIZOLAM) [Concomitant]

REACTIONS (2)
  - BLOOD PRESSURE INCREASED [None]
  - RHABDOMYOLYSIS [None]
